FAERS Safety Report 8941299 (Version 1)
Quarter: 2012Q4

REPORT INFORMATION
  Report Type: 
  Country: DE (occurrence: DE)
  Receive Date: 20121203
  Receipt Date: 20121203
  Transmission Date: 20130627
  Serious: Yes (Death, Hospitalization)
  Sender: FDA-Public Use
  Company Number: DE-ELI_LILLY_AND_COMPANY-DE201211007078

PATIENT
  Sex: Female

DRUGS (1)
  1. FORSTEO [Suspect]
     Dosage: UNK, qd
     Route: 058
     Dates: start: 20110826, end: 201207

REACTIONS (2)
  - Gastrointestinal carcinoma [Fatal]
  - Abdominal pain upper [Unknown]
